FAERS Safety Report 24463451 (Version 1)
Quarter: 2024Q4

REPORT INFORMATION
  Report Type: Report from Study
  Country: US (occurrence: US)
  Receive Date: 20241018
  Receipt Date: 20241018
  Transmission Date: 20250114
  Serious: No
  Sender: ROCHE
  Company Number: US-ROCHE-3073063

PATIENT
  Age: 31 Year
  Sex: Female
  Weight: 98.43 kg

DRUGS (17)
  1. XOLAIR [Suspect]
     Active Substance: OMALIZUMAB
     Indication: Ill-defined disorder
     Dosage: 150 MG PFS
     Route: 058
  2. XOLAIR [Suspect]
     Active Substance: OMALIZUMAB
     Indication: Anaphylactic reaction
  3. XOLAIR [Suspect]
     Active Substance: OMALIZUMAB
     Indication: Idiopathic urticaria
  4. XOLAIR [Suspect]
     Active Substance: OMALIZUMAB
     Indication: Food allergy
  5. XOLAIR [Suspect]
     Active Substance: OMALIZUMAB
     Indication: Chronic spontaneous urticaria
  6. PANTOPRAZOLE [Concomitant]
     Active Substance: PANTOPRAZOLE
     Indication: Gastrooesophageal reflux disease
  7. LEXAPRO [Concomitant]
     Active Substance: ESCITALOPRAM OXALATE
     Route: 048
  8. MICROGESTIN [Concomitant]
     Active Substance: ETHINYL ESTRADIOL\NORETHINDRONE ACETATE
     Dosage: 1.5/30
     Route: 048
  9. OPTIVAR [Concomitant]
     Active Substance: AZELASTINE HYDROCHLORIDE
     Route: 047
  10. VENTOLIN [Concomitant]
     Active Substance: ALBUTEROL SULFATE
  11. AUVI-Q [Concomitant]
     Active Substance: EPINEPHRINE
  12. ASMANEX [Concomitant]
     Active Substance: MOMETASONE FUROATE
  13. FLONASE [Concomitant]
     Active Substance: FLUTICASONE PROPIONATE
  14. CETIRIZINE HYDROCHLORIDE [Concomitant]
     Active Substance: CETIRIZINE HYDROCHLORIDE
     Route: 048
  15. SINGULAIR [Concomitant]
     Active Substance: MONTELUKAST SODIUM
  16. ZYRTEC [Concomitant]
     Active Substance: CETIRIZINE HYDROCHLORIDE
  17. ASMANEX [Concomitant]
     Active Substance: MOMETASONE FUROATE

REACTIONS (26)
  - Product prescribing error [Unknown]
  - Weight abnormal [Unknown]
  - Pyrexia [Unknown]
  - Eye pruritus [Unknown]
  - Lacrimation increased [Unknown]
  - Ear discomfort [Unknown]
  - Ear pain [Unknown]
  - Epistaxis [Unknown]
  - Parosmia [Unknown]
  - Taste disorder [Unknown]
  - Dysphonia [Unknown]
  - Chest pain [Unknown]
  - Peripheral swelling [Unknown]
  - Cough [Unknown]
  - Wheezing [Unknown]
  - Nausea [Unknown]
  - Vomiting [Unknown]
  - Diarrhoea [Unknown]
  - Pollakiuria [Unknown]
  - Dysuria [Unknown]
  - Dizziness [Unknown]
  - Seizure [Unknown]
  - Temperature intolerance [Unknown]
  - Fatigue [Unknown]
  - Mass [Unknown]
  - Lymphadenopathy [Unknown]
